FAERS Safety Report 25002544 (Version 1)
Quarter: 2025Q1

REPORT INFORMATION
  Report Type: Spontaneous
  Country: ES (occurrence: ES)
  Receive Date: 20250224
  Receipt Date: 20250224
  Transmission Date: 20250409
  Serious: Yes (Hospitalization, Other)
  Sender: NOVO NORDISK
  Company Number: ES-NOVOPROD-1370832

PATIENT
  Age: 49 Year
  Sex: Male

DRUGS (4)
  1. NOVOSEVEN [Suspect]
     Active Substance: COAGULATION FACTOR VIIA RECOMBINANT HUMAN
     Indication: Muscle haemorrhage
  2. NOVOSEVEN [Suspect]
     Active Substance: COAGULATION FACTOR VIIA RECOMBINANT HUMAN
     Indication: Acquired haemophilia
     Dosage: 9 MG/KG, QID
  3. PREDNISONE [Concomitant]
     Active Substance: PREDNISONE
  4. RITUXIMAB [Concomitant]
     Active Substance: RITUXIMAB

REACTIONS (1)
  - Pharyngeal haematoma [Recovered/Resolved]

NARRATIVE: CASE EVENT DATE: 20241204
